FAERS Safety Report 10430949 (Version 1)
Quarter: 2014Q1

REPORT INFORMATION
  Report Type: Spontaneous
  Country: US (occurrence: None)
  Receive Date: 20140314
  Receipt Date: 20140314
  Transmission Date: 20141002
  Serious: Yes (Other)
  Sender: FDA-Public Use
  Company Number: 2013000005A

PATIENT
  Age: 76 Year
  Sex: Male

DRUGS (6)
  1. TRAZODONE [Suspect]
     Indication: PRODUCT USED FOR UNKNOWN INDICATION
  2. XTANDI [Suspect]
     Indication: PROSTATE CANCER
     Route: 048
     Dates: start: 20121129, end: 20130125
  3. PERCOCET [Suspect]
     Indication: SPINAL PAIN
  4. PERCOCET [Suspect]
     Indication: INTERVERTEBRAL DISC PROTRUSION
  5. OXYCONTIN [Suspect]
     Indication: SPINAL PAIN
  6. OXYCONTIN [Suspect]
     Indication: INTERVERTEBRAL DISC PROTRUSION

REACTIONS (1)
  - Nausea [None]
